FAERS Safety Report 17796727 (Version 1)
Quarter: 2020Q2

REPORT INFORMATION
  Report Type: Spontaneous
  Country: ZA (occurrence: ZA)
  Receive Date: 20200518
  Receipt Date: 20200518
  Transmission Date: 20200714
  Serious: Yes (Other)
  Sender: FDA-Public Use
  Company Number: ZA-CIPLA LTD.-2020ZA03314

PATIENT

DRUGS (5)
  1. K-FENAK [Suspect]
     Active Substance: DICLOFENAC POTASSIUM
     Indication: SACROILIITIS
     Dosage: UNK
     Route: 065
  2. SERDEP [SERTRALINE HYDROCHLORIDE] [Concomitant]
     Indication: DEPRESSION
     Dosage: UNK, 100 MILLIGRAM
     Route: 065
  3. COXFLAM [Suspect]
     Active Substance: MELOXICAM
     Indication: SACROILIITIS
     Dosage: 15 MILLIGRAM DAILY
     Route: 065
     Dates: start: 20170330, end: 20180723
  4. BROMAZEPAM [Concomitant]
     Active Substance: BROMAZEPAM
     Indication: DEPRESSION
     Dosage: UNK
     Route: 065
  5. ARCOXIA [Suspect]
     Active Substance: ETORICOXIB
     Indication: SACROILIITIS
     Dosage: 90 MILLIGRAM DAILY
     Route: 065
     Dates: start: 20190723

REACTIONS (1)
  - Treatment failure [Unknown]
